FAERS Safety Report 19603045 (Version 2)
Quarter: 2021Q3

REPORT INFORMATION
  Report Type: Spontaneous
  Country: FR (occurrence: FR)
  Receive Date: 20210723
  Receipt Date: 20210928
  Transmission Date: 20211014
  Serious: Yes (Other)
  Sender: FDA-Public Use
  Company Number: FR-BAYER-2021-175799

PATIENT
  Age: 55 Year
  Sex: Male
  Weight: 70 kg

DRUGS (39)
  1. FUROSEMIDE. [Suspect]
     Active Substance: FUROSEMIDE
     Indication: PRODUCT USED FOR UNKNOWN INDICATION
     Dosage: UNK
     Route: 065
     Dates: start: 20210326, end: 20210430
  2. MEROPENEM. [Suspect]
     Active Substance: MEROPENEM
     Indication: PRODUCT USED FOR UNKNOWN INDICATION
     Dosage: UNK
     Route: 065
     Dates: start: 20210513, end: 20210515
  3. MEROPENEM. [Suspect]
     Active Substance: MEROPENEM
     Indication: PRODUCT USED FOR UNKNOWN INDICATION
     Dosage: UNK
     Route: 065
     Dates: start: 20210404, end: 20210506
  4. ATRACURIUM BESILATE [Suspect]
     Active Substance: ATRACURIUM BESYLATE
     Dosage: UNK
     Dates: start: 20210408, end: 20210430
  5. COLISTIMETHATE SODIUM. [Suspect]
     Active Substance: COLISTIMETHATE SODIUM
     Dosage: UNK (1 DOSE)
     Dates: start: 20210507, end: 20210507
  6. AMIKACIN. [Suspect]
     Active Substance: AMIKACIN
     Dosage: UNK
     Dates: start: 20210421
  7. SUFENTANIL [Suspect]
     Active Substance: SUFENTANIL
     Indication: SEDATION
     Dosage: UNK
     Route: 042
     Dates: start: 20210407, end: 20210416
  8. METFORMIN [Concomitant]
     Active Substance: METFORMIN HYDROCHLORIDE
     Indication: TYPE 2 DIABETES MELLITUS
     Dosage: UNK
  9. METFORMIN [Concomitant]
     Active Substance: METFORMIN HYDROCHLORIDE
     Indication: TYPE 2 DIABETES MELLITUS
     Dosage: 850 MG, BID (MORNING AND EVENING
  10. MOVICOL [MACROGOL 3350;POTASSIUM CHLORIDE;SODIUM BICARBONATE;SODIU [Concomitant]
  11. HYDROCHLOROTHIAZIDE. [Suspect]
     Active Substance: HYDROCHLOROTHIAZIDE
     Dosage: UNK
     Dates: start: 20210501, end: 20210504
  12. BUMETANIDE. [Suspect]
     Active Substance: BUMETANIDE
     Dosage: UNK
     Dates: start: 20210505
  13. HEPARIN SODIUM. [Suspect]
     Active Substance: HEPARIN SODIUM
     Indication: ANTICOAGULANT THERAPY
     Dosage: UNK
  14. MEROPENEM. [Suspect]
     Active Substance: MEROPENEM
     Indication: PRODUCT USED FOR UNKNOWN INDICATION
     Dosage: UNK
     Route: 065
     Dates: start: 20210405, end: 20210506
  15. ATRACURIUM BESILATE [Suspect]
     Active Substance: ATRACURIUM BESYLATE
     Dosage: UNK
  16. AMIKACIN. [Suspect]
     Active Substance: AMIKACIN
     Dosage: UNK
     Dates: start: 20210514, end: 20210514
  17. CIPROFLOXACIN. [Suspect]
     Active Substance: CIPROFLOXACIN
     Dosage: UNK
     Dates: start: 20210502, end: 20210504
  18. MIDAZOLAM HYDROCHLORIDE. [Suspect]
     Active Substance: MIDAZOLAM HYDROCHLORIDE
     Indication: SEDATION
     Dosage: 50 MILLIGRAM
     Route: 042
     Dates: start: 20210407
  19. SUFENTANIL [Suspect]
     Active Substance: SUFENTANIL
     Indication: SEDATION
     Route: 065
     Dates: start: 20210421, end: 20210423
  20. URAPIDIL [Suspect]
     Active Substance: URAPIDIL
     Dosage: UNK
     Dates: start: 20210418, end: 20210421
  21. TAZOBACTAM SODIUM AND PIPERACILLIN SODIUM [Suspect]
     Active Substance: PIPERACILLIN SODIUM\TAZOBACTAM SODIUM
     Dosage: UNK
     Dates: start: 20210421, end: 20210423
  22. FUROSEMIDE. [Suspect]
     Active Substance: FUROSEMIDE
     Indication: PRODUCT USED FOR UNKNOWN INDICATION
     Dosage: 4000 UI * 2 / JDELAI 1ERE ADMINISTRATION : J28
     Route: 058
     Dates: start: 20210326
  23. MIDAZOLAM HYDROCHLORIDE. [Suspect]
     Active Substance: MIDAZOLAM HYDROCHLORIDE
     Indication: SEIZURE
  24. METRONIDAZOLE. [Suspect]
     Active Substance: METRONIDAZOLE
     Dosage: 1 DOSAGE FORM
     Dates: start: 20210409, end: 20210414
  25. AZTREONAM. [Suspect]
     Active Substance: AZTREONAM
     Dosage: UNK
     Dates: start: 20210423, end: 20210501
  26. STERCULIA [Concomitant]
     Active Substance: HERBALS\KARAYA GUM
     Dosage: UNK
  27. MACROGOL 3350 [Concomitant]
     Active Substance: POLYETHYLENE GLYCOL 3350
     Dosage: UNK
  28. IMIPENEM [Suspect]
     Active Substance: IMIPENEM
     Indication: PRODUCT USED FOR UNKNOWN INDICATION
     Dosage: UNK
     Route: 065
     Dates: start: 20210326
  29. MEROPENEM. [Suspect]
     Active Substance: MEROPENEM
     Indication: PRODUCT USED FOR UNKNOWN INDICATION
     Dosage: UNK
     Route: 065
     Dates: start: 20210517
  30. PROPOFOL. [Suspect]
     Active Substance: PROPOFOL
     Dosage: UNK
     Dates: start: 20210407
  31. HEPARIN SODIUM. [Suspect]
     Active Substance: HEPARIN SODIUM
     Indication: ANTICOAGULANT THERAPY
     Dosage: 4000 UI * 2 / JD?LAI 1?RE ADMINISTRATION : J28
     Route: 058
     Dates: start: 20210326
  32. IMIPENEM [Suspect]
     Active Substance: IMIPENEM
     Indication: PRODUCT USED FOR UNKNOWN INDICATION
     Dosage: UNK
     Route: 065
     Dates: start: 20210505, end: 20210518
  33. METRONIDAZOLE. [Suspect]
     Active Substance: METRONIDAZOLE
     Dosage: UNK
     Dates: start: 20210409, end: 20210414
  34. CIPROFLOXACIN. [Suspect]
     Active Substance: CIPROFLOXACIN
     Dosage: UNK
     Dates: start: 20210508, end: 20210515
  35. ACICLOVIR [Suspect]
     Active Substance: ACYCLOVIR
     Dosage: UNK
     Dates: start: 20210423, end: 20210430
  36. INSULIN [Suspect]
     Active Substance: INSULIN NOS
     Dosage: UNK
     Dates: start: 20210326
  37. LANSOPRAZOLE. [Suspect]
     Active Substance: LANSOPRAZOLE
     Indication: PROPHYLAXIS AGAINST GASTROINTESTINAL ULCER
     Dosage: 30 MG, QD
     Route: 048
     Dates: start: 20210408
  38. AMIKACIN. [Suspect]
     Active Substance: AMIKACIN
     Dosage: UNK
     Dates: start: 20210504, end: 20210504
  39. AMLODIPINE BESILATE [Concomitant]
     Active Substance: AMLODIPINE BESYLATE
     Dosage: 5 MG, QD (EVENING

REACTIONS (8)
  - Leukocytosis [Unknown]
  - Thrombocytopenia [Recovered/Resolved]
  - Rash maculo-papular [Recovering/Resolving]
  - Eosinophilia [Recovering/Resolving]
  - Thrombocytopenia [Recovered/Resolved]
  - Hepatic cytolysis [Unknown]
  - Rash maculo-papular [Recovering/Resolving]
  - Condition aggravated [Recovered/Resolved]

NARRATIVE: CASE EVENT DATE: 2021
